FAERS Safety Report 10301378 (Version 1)
Quarter: 2014Q3

REPORT INFORMATION
  Report Type: Spontaneous
  Country: GB (occurrence: GB)
  Receive Date: 20140714
  Receipt Date: 20140714
  Transmission Date: 20150326
  Serious: Yes (Death, Life-Threatening, Other)
  Sender: FDA-Public Use
  Company Number: GB-MYLANLABS-2014S1015531

PATIENT
  Age: 88 Year
  Sex: Male
  Weight: 70 kg

DRUGS (2)
  1. FINASTERIDE. [Concomitant]
     Active Substance: FINASTERIDE
     Indication: PROSTATISM
     Route: 048
     Dates: start: 20030321
  2. GALANTAMINE [Suspect]
     Active Substance: GALANTAMINE
     Indication: DEMENTIA
     Route: 048

REACTIONS (1)
  - Gastric perforation [Fatal]

NARRATIVE: CASE EVENT DATE: 20140605
